FAERS Safety Report 8964804 (Version 1)
Quarter: 2012Q4

REPORT INFORMATION
  Report Type: 
  Country: FR (occurrence: FR)
  Receive Date: 20121214
  Receipt Date: 20121214
  Transmission Date: 20130627
  Serious: Yes (Hospitalization, Disabling, Other)
  Sender: FDA-Public Use
  Company Number: FR-PFIZER INC-2012308755

PATIENT
  Age: 70 Year
  Sex: Male

DRUGS (6)
  1. VIAGRA [Suspect]
     Indication: ERECTILE DYSFUNCTION
     Dosage: UNK
     Route: 048
     Dates: end: 20121008
  2. ZANIDIP [Concomitant]
     Dosage: 20 mg, 1x/day
     Route: 048
  3. ADENURIC [Concomitant]
     Dosage: 80 mg, 1x/day
     Route: 048
  4. LEVOTHYROX [Concomitant]
     Dosage: 0.5 DF, 1x/day
     Route: 048
  5. LUMIGAN [Concomitant]
     Dosage: 1 DF, 1x/day
     Route: 047
  6. ARTELAC [Concomitant]
     Dosage: 1 DF, 4x/day
     Route: 047

REACTIONS (6)
  - Ischaemic stroke [Recovered/Resolved with Sequelae]
  - Stress ulcer [Recovered/Resolved]
  - Anaemia [Unknown]
  - Melaena [Unknown]
  - Hypothyroidism [Unknown]
  - Inflammation [Unknown]
